FAERS Safety Report 20767858 (Version 1)
Quarter: 2022Q2

REPORT INFORMATION
  Report Type: Spontaneous
  Country: US (occurrence: US)
  Receive Date: 20220429
  Receipt Date: 20220429
  Transmission Date: 20220721
  Serious: Yes (Other)
  Sender: FDA-Public Use
  Company Number: US-drreddys-LIT/USA/22/0149347

PATIENT
  Sex: Female

DRUGS (7)
  1. DIPHENHYDRAMINE HYDROCHLORIDE [Suspect]
     Active Substance: DIPHENHYDRAMINE HYDROCHLORIDE
     Indication: Infusion related reaction
  2. FAMOTIDINE [Suspect]
     Active Substance: FAMOTIDINE
     Indication: Infusion related reaction
  3. FAMOTIDINE [Suspect]
     Active Substance: FAMOTIDINE
  4. FAMOTIDINE [Suspect]
     Active Substance: FAMOTIDINE
  5. ALBUTEROL [Suspect]
     Active Substance: ALBUTEROL
     Indication: Infusion related reaction
  6. SOLU-MEDROL [Suspect]
     Active Substance: METHYLPREDNISOLONE SODIUM SUCCINATE
     Indication: Infusion related reaction
  7. IV iron dextran [Concomitant]
     Indication: Iron deficiency
     Dosage: LOW MOLECULAR WEIGHT IRON DEXTRAN
     Route: 042

REACTIONS (1)
  - Drug ineffective [Unknown]
